FAERS Safety Report 23187951 (Version 5)
Quarter: 2024Q3

REPORT INFORMATION
  Report Type: Report from Study
  Country: KR (occurrence: KR)
  Receive Date: 20231115
  Receipt Date: 20240730
  Transmission Date: 20241017
  Serious: Yes (Death, Life-Threatening, Hospitalization, Other)
  Sender: JAZZ
  Company Number: KR-BR-2023-0215

PATIENT
  Age: 80 Year
  Sex: Male
  Weight: 50.3 kg

DRUGS (8)
  1. LURBINECTEDIN [Suspect]
     Active Substance: LURBINECTEDIN
     Indication: Small cell lung cancer
     Dosage: 3.2 MILLIGRAM/SQ. METER, Q3W
     Route: 042
     Dates: start: 20231016, end: 20231016
  2. MACPERAN [METOCLOPRAMIDE] [Concomitant]
     Indication: Prophylaxis of nausea and vomiting
     Dosage: 2 MILLILITER, TID
     Route: 042
     Dates: start: 20231016, end: 20231029
  3. YUHAN DEXAMETHASONE [Concomitant]
     Indication: Prophylactic chemotherapy
     Dosage: 8 MILLILITER, QD
     Route: 042
     Dates: start: 20231016, end: 20231016
  4. MAGNESIUM HYDROXIDE [Concomitant]
     Active Substance: MAGNESIUM HYDROXIDE
     Indication: Constipation prophylaxis
     Dosage: 500 MILLIGRAM / 8 H
     Route: 048
     Dates: start: 20231017, end: 20231029
  5. GANAKHAN [Concomitant]
     Indication: Gastrointestinal disorder prophylaxis
     Dosage: 500 MILLIGRAM, TID
     Route: 048
     Dates: start: 20231017, end: 20231029
  6. HANA CODEINE PHOSPHATE [Concomitant]
     Indication: Prophylaxis
     Dosage: 20 MILLIGRAM / 8 H
     Route: 048
     Dates: start: 20231017, end: 20231029
  7. SURFOLASE [Concomitant]
     Indication: Bronchial disorder
     Dosage: 1 DOSAGE FORM / 12H
     Route: 048
     Dates: start: 20231017, end: 20231029
  8. CODAEWON S [Concomitant]
     Indication: Bronchial disorder
     Dosage: 20 MILLILITER, TID
     Route: 048
     Dates: start: 20231017, end: 20231029

REACTIONS (2)
  - Pneumonia [Fatal]
  - Neutropenia [Recovered/Resolved]

NARRATIVE: CASE EVENT DATE: 20231022
